FAERS Safety Report 7600726-2 (Version None)
Quarter: 2011Q3

REPORT INFORMATION
  Report Type: 
  Country: None (occurrence: None)
  Receive Date: 20110711
  Receipt Date: 20110705
  Transmission Date: 20111222
  Serious: Yes (Other)
  Sender: FDA-Public Use
  Company Number: FR-ROCHE-788392

PATIENT
  Age: 60 Year
  Sex: Female

DRUGS (1)
  1. XELODA [Suspect]
     Dosage: 150 MG  TABLET
     Route: 048
     Dates: start: 20090101

REACTIONS (1)
  - MELANOCYTIC NAEVUS [None]
